FAERS Safety Report 23653596 (Version 2)
Quarter: 2024Q1

REPORT INFORMATION
  Report Type: Spontaneous
  Country: US (occurrence: US)
  Receive Date: 20240320
  Receipt Date: 20240328
  Transmission Date: 20240410
  Serious: Yes (Other)
  Sender: FDA-Public Use
  Company Number: US-BAYER-2024A033583

PATIENT
  Age: 38 Year
  Sex: Male

DRUGS (2)
  1. KOVALTRY [Suspect]
     Active Substance: ANTIHEMOPHILIC FACTOR, HUMAN RECOMBINANT
     Indication: Factor VIII deficiency
     Dosage: INFUSE 1680 TO 2100 UNITS/3360 TO 4200 UNITS
     Route: 042
  2. KOVALTRY [Suspect]
     Active Substance: ANTIHEMOPHILIC FACTOR, HUMAN RECOMBINANT
     Indication: Factor VIII deficiency
     Dosage: AN ADDITIONAL DOSE FOR TREATMENT OF INJURY
     Dates: start: 20240303, end: 20240303

REACTIONS (2)
  - Injury [None]
  - Haemorrhage [None]

NARRATIVE: CASE EVENT DATE: 20240301
